FAERS Safety Report 19695394 (Version 5)
Quarter: 2021Q4

REPORT INFORMATION
  Report Type: Report from Study
  Country: US (occurrence: US)
  Receive Date: 20210813
  Receipt Date: 20211201
  Transmission Date: 20220303
  Serious: No
  Sender: FDA-Public Use
  Company Number: NVSC2021US181663

PATIENT
  Sex: Female

DRUGS (1)
  1. ENTRESTO [Suspect]
     Active Substance: SACUBITRIL\VALSARTAN
     Indication: Product used for unknown indication
     Dosage: 1 DF, BID ( 24/26 MG)
     Route: 048
     Dates: start: 20210731

REACTIONS (6)
  - Glycosylated haemoglobin decreased [Recovering/Resolving]
  - Weight increased [Unknown]
  - Weight decreased [Unknown]
  - Chest discomfort [Unknown]
  - Heart rate decreased [Unknown]
  - Alopecia [Unknown]
